FAERS Safety Report 7913015-3 (Version None)
Quarter: 2011Q4

REPORT INFORMATION
  Report Type: 
  Country: None (occurrence: None)
  Receive Date: 20111114
  Receipt Date: 20111107
  Transmission Date: 20120403
  Serious: Yes (Other)
  Sender: FDA-Public Use
  Company Number: US-US-EMD SERONO, INC.-7081290

PATIENT
  Sex: Female
  Weight: 46 kg

DRUGS (6)
  1. BACLOFEN [Concomitant]
     Indication: MUSCLE SPASTICITY
  2. CYMBALTA [Concomitant]
     Indication: NEURALGIA
  3. BACLOFEN [Concomitant]
     Indication: MUSCLE SPASMS
  4. REBIF [Suspect]
     Indication: MULTIPLE SCLEROSIS
     Route: 058
     Dates: start: 20080412, end: 20110830
  5. AMPYRA [Concomitant]
     Indication: MULTIPLE SCLEROSIS
     Dates: start: 20100101
  6. CYMBALTA [Concomitant]
     Indication: DEPRESSION

REACTIONS (2)
  - PSEUDOMONAS INFECTION [None]
  - INJECTION SITE INFECTION [None]
